FAERS Safety Report 8800652 (Version 3)
Quarter: 2015Q3

REPORT INFORMATION
  Report Type: Report from Study
  Country: US (occurrence: US)
  Receive Date: 20120921
  Receipt Date: 20150701
  Transmission Date: 20151125
  Serious: Yes (Death, Other)
  Sender: FDA-Public Use
  Company Number: US-ROCHE-1126728

PATIENT
  Age: 49 Year
  Sex: Female

DRUGS (31)
  1. AVASTIN [Suspect]
     Active Substance: BEVACIZUMAB
     Indication: BREAST CANCER FEMALE
     Route: 042
     Dates: start: 20050907
  2. DECADRON [Concomitant]
     Active Substance: DEXAMETHASONE
     Route: 042
  3. DECADRON [Concomitant]
     Active Substance: DEXAMETHASONE
     Route: 042
  4. ZOMETA [Concomitant]
     Active Substance: ZOLEDRONIC ACID
     Route: 042
  5. NAVELBINE [Concomitant]
     Active Substance: VINORELBINE TARTRATE
     Route: 042
  6. ZANTAC [Concomitant]
     Active Substance: RANITIDINE HYDROCHLORIDE
     Route: 042
  7. DURAGESIC [Concomitant]
     Active Substance: FENTANYL
     Route: 042
  8. ABRAXANE [Concomitant]
     Active Substance: PACLITAXEL
     Route: 042
  9. TAXOTERE [Concomitant]
     Active Substance: DOCETAXEL
     Route: 042
  10. LEXAPRO [Concomitant]
     Active Substance: ESCITALOPRAM OXALATE
     Route: 065
  11. DOXIL [Concomitant]
     Active Substance: DOXORUBICIN HYDROCHLORIDE
     Route: 042
  12. DOXIL [Concomitant]
     Active Substance: DOXORUBICIN HYDROCHLORIDE
     Route: 042
  13. VICODIN [Concomitant]
     Active Substance: ACETAMINOPHEN\HYDROCODONE BITARTRATE
     Route: 065
  14. ARANESP [Concomitant]
     Active Substance: DARBEPOETIN ALFA
     Route: 065
  15. GEMZAR [Concomitant]
     Active Substance: GEMCITABINE HYDROCHLORIDE
     Route: 065
  16. CIPROFLOXACIN. [Concomitant]
     Active Substance: CIPROFLOXACIN
     Route: 065
  17. EPOGEN [Concomitant]
     Active Substance: ERYTHROPOIETIN
     Route: 065
  18. TYLENOL [Concomitant]
     Active Substance: ACETAMINOPHEN
     Route: 065
  19. COLACE [Concomitant]
     Active Substance: DOCUSATE SODIUM
     Route: 065
  20. ZITHROMAX [Concomitant]
     Active Substance: AZITHROMYCIN DIHYDRATE
     Route: 065
  21. VELBAN [Concomitant]
     Active Substance: VINBLASTINE SULFATE
     Route: 042
  22. ANZEMET [Concomitant]
     Active Substance: DOLASETRON MESYLATE
     Route: 042
  23. XELODA [Suspect]
     Active Substance: CAPECITABINE
     Indication: PRODUCT USED FOR UNKNOWN INDICATION
     Dosage: FOR 14 DAYS
     Route: 048
     Dates: start: 20041228
  24. ALOXI [Concomitant]
     Active Substance: PALONOSETRON HYDROCHLORIDE
     Route: 042
  25. VINBLASTINE [Concomitant]
     Active Substance: VINBLASTINE
     Route: 065
  26. ALBUTEROL. [Concomitant]
     Active Substance: ALBUTEROL
     Route: 065
  27. BENADRYL [Concomitant]
     Active Substance: DIPHENHYDRAMINE HYDROCHLORIDE
     Route: 042
  28. SOLU-MEDROL [Concomitant]
     Active Substance: METHYLPREDNISOLONE SODIUM SUCCINATE
     Route: 065
  29. ADVAIR HFA [Concomitant]
     Active Substance: FLUTICASONE PROPIONATE\SALMETEROL XINAFOATE
     Route: 065
  30. VELBAN [Concomitant]
     Active Substance: VINBLASTINE SULFATE
     Route: 042
  31. SYNTHROID [Concomitant]
     Active Substance: LEVOTHYROXINE SODIUM
     Route: 065

REACTIONS (31)
  - Fluid retention [Unknown]
  - Palmar-plantar erythrodysaesthesia syndrome [Recovering/Resolving]
  - Hypercalcaemia [Unknown]
  - Oedema [Unknown]
  - Claustrophobia [Unknown]
  - Visual acuity reduced [Unknown]
  - Oesophageal disorder [Unknown]
  - Chest discomfort [Recovered/Resolved]
  - Nausea [Unknown]
  - Flank pain [Unknown]
  - Dry mouth [Unknown]
  - Pancytopenia [Unknown]
  - Dysphagia [Unknown]
  - Hypovolaemia [Unknown]
  - Dehydration [Unknown]
  - Disease progression [Unknown]
  - Skin hyperpigmentation [Unknown]
  - Bicytopenia [Unknown]
  - Dyspnoea [Unknown]
  - Hyponatraemia [Unknown]
  - Death [Fatal]
  - Acute sinusitis [Unknown]
  - Rhinorrhoea [Unknown]
  - Fatigue [Unknown]
  - Panic attack [Unknown]
  - Rash [Recovered/Resolved]
  - Axillary pain [Recovered/Resolved]
  - Sinusitis [Unknown]
  - Constipation [Unknown]
  - Neutropenia [Unknown]
  - Off label use [Unknown]

NARRATIVE: CASE EVENT DATE: 20051102
